FAERS Safety Report 5730355-7 (Version None)
Quarter: 2008Q2

REPORT INFORMATION
  Report Type: 
  Country: None (occurrence: None)
  Receive Date: 20080502
  Receipt Date: 20080418
  Transmission Date: 20081010
  Serious: Yes (Other)
  Sender: FDA-Public Use
  Company Number: 2008S1006588

PATIENT
  Age: 45 Year
  Sex: Male

DRUGS (2)
  1. BISOPROLOL FUMARATE AND HYDROCHLOROTHIAZIDE [Suspect]
     Indication: DRUG USE FOR UNKNOWN INDICATION
     Dosage: ORAL
     Route: 048
     Dates: start: 20080417
  2. ALCOHOL /00002101/ (ETHANOL) [Suspect]
     Indication: INTENTIONAL OVERDOSE
     Dosage: ORAL
     Route: 048
     Dates: start: 20080417

REACTIONS (2)
  - ALCOHOL USE [None]
  - INTENTIONAL OVERDOSE [None]
